FAERS Safety Report 19879084 (Version 4)
Quarter: 2021Q4

REPORT INFORMATION
  Report Type: Spontaneous
  Country: US (occurrence: US)
  Receive Date: 20210923
  Receipt Date: 20211113
  Transmission Date: 20220303
  Serious: No
  Sender: FDA-Public Use
  Company Number: US-JNJFOC-20210922454

PATIENT
  Age: 75 Year
  Sex: Female
  Weight: 63.560 kg

DRUGS (1)
  1. WOMENS ROGAINE UNSCENTED [Suspect]
     Active Substance: MINOXIDIL
     Indication: Alopecia
     Dosage: DOSE: USE THE CAP FOLLOW EXACTLY THE WAY IT WAS
     Route: 061
     Dates: start: 20210721, end: 20210921

REACTIONS (3)
  - Hair growth abnormal [Recovering/Resolving]
  - Alopecia [Recovering/Resolving]
  - Drug ineffective [Unknown]

NARRATIVE: CASE EVENT DATE: 20210101
